FAERS Safety Report 5283722-2 (Version None)
Quarter: 2007Q1

REPORT INFORMATION
  Report Type: 
  Country: None (occurrence: None)
  Receive Date: 20070327
  Receipt Date: 20070313
  Transmission Date: 20070707
  Serious: Yes (Other)
  Sender: FDA-Public Use
  Company Number: SU-2007-006019

PATIENT

DRUGS (1)
  1. BENICAR HCT [Suspect]
     Dosage: MG UNK PO
     Route: 048

REACTIONS (1)
  - GLOMERULAR FILTRATION RATE DECREASED [None]
